FAERS Safety Report 23541053 (Version 1)
Quarter: 2024Q1

REPORT INFORMATION
  Report Type: Spontaneous
  Country: US (occurrence: US)
  Receive Date: 20240219
  Receipt Date: 20240219
  Transmission Date: 20240409
  Serious: No
  Sender: FDA-Public Use
  Company Number: US-Stemline Therapeutics, Inc.-2024ST000080

PATIENT
  Age: 59 Year
  Sex: Female

DRUGS (1)
  1. ORSERDU [Suspect]
     Active Substance: ELACESTRANT
     Indication: Product used for unknown indication
     Route: 048
     Dates: start: 20230706, end: 20231220

REACTIONS (12)
  - Mobility decreased [Unknown]
  - Illness [Unknown]
  - Burning sensation [Unknown]
  - Pain [Unknown]
  - Oropharyngeal discomfort [Unknown]
  - Product use complaint [Unknown]
  - Chest discomfort [Unknown]
  - Dehydration [Unknown]
  - Malaise [Unknown]
  - Pharyngeal contusion [Unknown]
  - Product dose omission issue [Unknown]
  - Decreased appetite [Unknown]

NARRATIVE: CASE EVENT DATE: 20231219
